FAERS Safety Report 5120933-0 (Version None)
Quarter: 2006Q4

REPORT INFORMATION
  Report Type: 
  Country: None (occurrence: None)
  Receive Date: 20061005
  Receipt Date: 20060926
  Transmission Date: 20070319
  Serious: Yes (Death, Hospitalization)
  Sender: FDA-Public Use
  Company Number: US-BRISTOL-MYERS SQUIBB COMPANY-13522537

PATIENT
  Age: 70 Year
  Sex: Male

DRUGS (5)
  1. CETUXIMAB [Suspect]
     Indication: NON-SMALL CELL LUNG CANCER
     Route: 042
     Dates: start: 20051024
  2. CARBOPLATIN [Suspect]
     Indication: NON-SMALL CELL LUNG CANCER
     Route: 042
     Dates: start: 20051024
  3. ATENOLOL [Concomitant]
     Dates: start: 20051018, end: 20051211
  4. SURFAK [Concomitant]
     Dates: start: 20051018, end: 20051211
  5. PRAVACHOL [Concomitant]
     Dates: start: 20051018, end: 20051211

REACTIONS (4)
  - DEEP VEIN THROMBOSIS [None]
  - DISEASE PROGRESSION [None]
  - RENAL FAILURE [None]
  - RESPIRATORY FAILURE [None]
